FAERS Safety Report 12400493 (Version 1)
Quarter: 2016Q2

REPORT INFORMATION
  Report Type: Spontaneous
  Country: US (occurrence: None)
  Receive Date: 20160524
  Receipt Date: 20160524
  Transmission Date: 20160815
  Serious: Yes (Life-Threatening, Other)
  Sender: FDA-Public Use
  Company Number: None

PATIENT
  Age: 48 Year
  Sex: Female
  Weight: 121.11 kg

DRUGS (12)
  1. FENTANYL TRANSDERMAL SYSTEM [Suspect]
     Active Substance: FENTANYL
     Indication: PSORIATIC ARTHROPATHY
     Dosage: 15 PATCH(ES) EVERY 48 HOURS  APPLIED AS MEDICATED PATCH TO SKIN
     Route: 062
     Dates: start: 20160519, end: 20160522
  2. BACLOFEN. [Concomitant]
     Active Substance: BACLOFEN
  3. TRAZODONE [Concomitant]
     Active Substance: TRAZODONE HYDROCHLORIDE
  4. CYMBALTA [Concomitant]
     Active Substance: DULOXETINE HYDROCHLORIDE
  5. FENTANYL TRANSDERMAL SYSTEM [Suspect]
     Active Substance: FENTANYL
     Indication: STENOSIS
     Dosage: 15 PATCH(ES) EVERY 48 HOURS  APPLIED AS MEDICATED PATCH TO SKIN
     Route: 062
     Dates: start: 20160519, end: 20160522
  6. OSTEO BIFLEX [Concomitant]
     Active Substance: CHONDROITIN SULFATE A\GLUCOSAMINE
  7. CALCIUM [Concomitant]
     Active Substance: CALCIUM
  8. MAGNESIUM [Concomitant]
     Active Substance: MAGNESIUM
  9. MORPHINE [Concomitant]
     Active Substance: MORPHINE
  10. FENTANYL TRANSDERMAL SYSTEM [Suspect]
     Active Substance: FENTANYL
     Indication: PAIN
     Dosage: 15 PATCH(ES) EVERY 48 HOURS  APPLIED AS MEDICATED PATCH TO SKIN
     Route: 062
     Dates: start: 20160519, end: 20160522
  11. METATOPROLOL [Concomitant]
  12. ZYRTEC [Concomitant]
     Active Substance: CETIRIZINE HYDROCHLORIDE

REACTIONS (2)
  - Drug withdrawal syndrome [None]
  - Muscle spasms [None]

NARRATIVE: CASE EVENT DATE: 20160519
